FAERS Safety Report 6011289-X (Version None)
Quarter: 2008Q4

REPORT INFORMATION
  Report Type: 
  Country: None (occurrence: None)
  Receive Date: 20081218
  Receipt Date: 20081210
  Transmission Date: 20090506
  Serious: Yes (Hospitalization, Other)
  Sender: FDA-Public Use
  Company Number: US-ABBOTT-08P-163-0492179-00

PATIENT
  Sex: Female

DRUGS (2)
  1. HUMIRA [Suspect]
     Indication: CROHN'S DISEASE
     Route: 058
     Dates: start: 20070920
  2. TYLOX [Concomitant]
     Indication: PAIN

REACTIONS (3)
  - ABDOMINAL PAIN [None]
  - OVARIAN CYST [None]
  - OVARIAN CYST RUPTURED [None]
